FAERS Safety Report 13239104 (Version 1)
Quarter: 2017Q1

REPORT INFORMATION
  Report Type: Spontaneous
  Country: GB (occurrence: GB)
  Receive Date: 20170216
  Receipt Date: 20170216
  Transmission Date: 20170428
  Serious: Yes (Hospitalization)
  Sender: FDA-Public Use
  Company Number: GB-OTSUKA-2016_028039

PATIENT
  Age: 22 Year
  Sex: Male

DRUGS (4)
  1. DEPAKOTE [Suspect]
     Active Substance: DIVALPROEX SODIUM
     Dosage: UNK
     Route: 065
     Dates: start: 20151103
  2. ABILIFY MAINTENA [Suspect]
     Active Substance: ARIPIPRAZOLE
     Indication: PSYCHOTIC DISORDER
     Dosage: UNK
     Route: 042
     Dates: start: 2015
  3. OLANZAPINE. [Concomitant]
     Active Substance: OLANZAPINE
     Indication: PSYCHOTIC DISORDER
     Dosage: 10 MG, UNK
     Route: 065
     Dates: start: 201505, end: 201606
  4. DEPAKOTE [Suspect]
     Active Substance: DIVALPROEX SODIUM
     Indication: PSYCHOTIC DISORDER
     Dosage: UNK
     Route: 065
     Dates: start: 2015

REACTIONS (3)
  - Weight increased [Unknown]
  - Anosognosia [Unknown]
  - Off label use [Unknown]

NARRATIVE: CASE EVENT DATE: 2015
